FAERS Safety Report 8666369 (Version 3)
Quarter: 2013Q3

REPORT INFORMATION
  Report Type: Spontaneous
  Country: US (occurrence: US)
  Receive Date: 20120716
  Receipt Date: 20130802
  Transmission Date: 20140515
  Serious: Yes (Hospitalization)
  Sender: FDA-Public Use
  Company Number: US-B.I. PHARMACEUTICALS,INC./RIDGEFIELD-2012-BP-15316BP

PATIENT
  Age: 80 Year
  Sex: Female
  Weight: 72.57 kg

DRUGS (5)
  1. PRADAXA [Suspect]
     Indication: ATRIAL FIBRILLATION
     Dosage: 300 MG
     Dates: start: 20110114, end: 20110403
  2. ASPIR-81 [Concomitant]
     Dates: end: 20110519
  3. ASPIRIN [Concomitant]
  4. STOOL SOFTENER [Concomitant]
  5. PLAXIX [Concomitant]

REACTIONS (2)
  - Cerebral haemorrhage [Recovered/Resolved]
  - Haemorrhage [Unknown]
